FAERS Safety Report 6738410-X (Version None)
Quarter: 2010Q2

REPORT INFORMATION
  Report Type: 
  Country: None (occurrence: None)
  Receive Date: 20100520
  Receipt Date: 20100511
  Transmission Date: 20101027
  Serious: Yes (Hospitalization)
  Sender: FDA-Public Use
  Company Number: 010460

PATIENT
  Sex: Male
  Weight: 63.2 kg

DRUGS (2)
  1. CERTOLIZUMAB PEGOL (CERTOLIZUMAB PEGOL) [Suspect]
     Indication: CROHN'S DISEASE
     Dosage: (400 MG 1X/MONTH SUBCUTANEOUS
     Route: 058
     Dates: start: 20080620
  2. LEFAX /00159502/ [Concomitant]

REACTIONS (6)
  - ANAL ABSCESS [None]
  - CONTUSION [None]
  - EXCORIATION [None]
  - FALL [None]
  - ROAD TRAFFIC ACCIDENT [None]
  - SUBDURAL HAEMORRHAGE [None]
